FAERS Safety Report 4626002-8 (Version None)
Quarter: 2005Q1

REPORT INFORMATION
  Report Type: 
  Country: None (occurrence: None)
  Receive Date: 20050330
  Receipt Date: 20050317
  Transmission Date: 20050727
  Serious: Yes (Hospitalization, Other)
  Sender: FDA-Public Use
  Company Number: 2005029845

PATIENT
  Sex: Female

DRUGS (2)
  1. HYDROCORTISONE [Suspect]
     Indication: URINE OUTPUT DECREASED
     Dosage: INTRAVENOUS
     Route: 042
  2. CEFMETAZOLE (CEFMETAZOLE) [Concomitant]

REACTIONS (4)
  - BLOOD POTASSIUM INCREASED [None]
  - BLOOD SODIUM DECREASED [None]
  - NEONATAL DISORDER [None]
  - PERIVENTRICULAR LEUKOMALACIA [None]
